FAERS Safety Report 9704710 (Version 2)
Quarter: 2014Q1

REPORT INFORMATION
  Report Type: Spontaneous
  Country: US (occurrence: US)
  Receive Date: 20131122
  Receipt Date: 20140116
  Transmission Date: 20141002
  Serious: Yes (Hospitalization)
  Sender: FDA-Public Use
  Company Number: US-B.I. PHARMACEUTICALS,INC./RIDGEFIELD-2013-BI-37854BP

PATIENT
  Sex: Male
  Weight: 88.45 kg

DRUGS (11)
  1. PRADAXA [Suspect]
     Indication: ATRIAL FIBRILLATION
     Dosage: 300 MG
     Dates: start: 20101228, end: 20111125
  2. MULTAQ [Concomitant]
     Dosage: 800 MG
  3. VICTOZA [Concomitant]
     Dosage: 1.25 MG
     Route: 058
  4. ALLOPURINOL [Concomitant]
     Dosage: 300 MG
  5. ZETIA [Concomitant]
     Dosage: 10 MG
  6. DIPROLENE [Concomitant]
     Indication: RASH
  7. ALTACE [Concomitant]
     Dosage: 2.5 MG
  8. LASIX [Concomitant]
     Dosage: 80 MG
  9. LIPITOR [Concomitant]
     Dosage: 40 MG
     Dates: start: 1994
  10. GLUCOSAMINE [Concomitant]
     Dosage: 1500 MG
  11. CENTRUM SILVER [Concomitant]

REACTIONS (3)
  - Gastrointestinal haemorrhage [Unknown]
  - Haemorrhagic anaemia [Unknown]
  - Ecchymosis [Unknown]
